FAERS Safety Report 8811656 (Version 1)
Quarter: 2012Q4

REPORT INFORMATION
  Report Type: Spontaneous
  Country: KR (occurrence: None)
  Receive Date: 20120924
  Receipt Date: 20120924
  Transmission Date: 20130627
  Serious: Yes (Hospitalization, Other)
  Sender: FDA-Public Use
  Company Number: 2012KR006933

PATIENT
  Age: 38 Year
  Sex: Female
  Weight: 62 kg

DRUGS (9)
  1. PALONOSETRON HYDROCHLORIDE [Suspect]
     Indication: POSTOPERATIVE NAUSEA
     Route: 042
  2. GLYCOPYRROLATE [Concomitant]
  3. THIOPENTAL SODIUM (THIOPENTAL SODIUM) [Concomitant]
  4. ROCURONIUM (ROCURONIUM) [Concomitant]
  5. OXYGEN (OXYGEN) [Concomitant]
  6. SEVOFLURANE (SEVOFLURANE) [Concomitant]
  7. NITRIC OXIDE (NITRIC OXIDE) [Concomitant]
  8. SALINE (SODIUM CHLORIDE) [Concomitant]
  9. PYRIDOSTIGMINE (PYRIDOSTIGMINE) [Concomitant]

REACTIONS (1)
  - Convulsion [None]
